FAERS Safety Report 7280396-6 (Version None)
Quarter: 2011Q1

REPORT INFORMATION
  Report Type: 
  Country: None (occurrence: None)
  Receive Date: 20110208
  Receipt Date: 20110126
  Transmission Date: 20110831
  Serious: Yes (Other)
  Sender: FDA-Public Use
  Company Number: US-ELI_LILLY_AND_COMPANY-US201101006962

PATIENT
  Sex: Male
  Weight: 99.773 kg

DRUGS (2)
  1. HUMULIN R [Suspect]
     Indication: TYPE 2 DIABETES MELLITUS
     Dosage: 1 U, OTHER
     Dates: start: 20050901, end: 20100101
  2. LANTUS [Concomitant]

REACTIONS (4)
  - MULTIPLE MYELOMA [None]
  - INJECTION SITE HAEMATOMA [None]
  - BLOOD GLUCOSE INCREASED [None]
  - INJECTION SITE PAIN [None]
